FAERS Safety Report 9894514 (Version 2)
Quarter: 2014Q1

REPORT INFORMATION
  Report Type: Spontaneous
  Country: RO (occurrence: RO)
  Receive Date: 20140213
  Receipt Date: 20140213
  Transmission Date: 20141002
  Serious: Yes (Death, Other)
  Sender: FDA-Public Use
  Company Number: RO-PFIZER INC-2013328880

PATIENT
  Sex: Male
  Weight: 1 kg

DRUGS (5)
  1. MYCOBUTIN [Suspect]
     Indication: TUBERCULOSIS
     Dosage: UNK
     Route: 064
  2. ISONIAZID [Suspect]
     Indication: TUBERCULOSIS
     Dosage: UNK
     Route: 064
  3. ETHAMBUTOL [Suspect]
     Indication: TUBERCULOSIS
     Dosage: UNK
     Route: 064
  4. PYRAZINAMIDE [Suspect]
     Indication: TUBERCULOSIS
     Dosage: UNK
     Route: 064
  5. STREPTOMYCIN [Suspect]
     Indication: TUBERCULOSIS
     Dosage: UNK
     Route: 064

REACTIONS (3)
  - Haemorrhage neonatal [Fatal]
  - Maternal exposure timing unspecified [Fatal]
  - Small for dates baby [Unknown]
